FAERS Safety Report 10151815 (Version 1)
Quarter: 2014Q2

REPORT INFORMATION
  Report Type: Spontaneous
  Country: NL (occurrence: NL)
  Receive Date: 20140505
  Receipt Date: 20140505
  Transmission Date: 20141212
  Serious: Yes (Hospitalization)
  Sender: FDA-Public Use
  Company Number: NL-ROCHE-1392216

PATIENT
  Age: 53 Year
  Sex: Male

DRUGS (14)
  1. SOMATROPIN [Suspect]
     Indication: ACROMEGALY
     Route: 058
  2. SOMATULINE [Suspect]
     Indication: ACROMEGALY
     Route: 058
  3. AMITRIPTYLINE [Concomitant]
  4. PARACETAMOL [Concomitant]
  5. SOMAVERT [Concomitant]
  6. PANTOPRAZOLE [Concomitant]
  7. FOLIC ACID [Concomitant]
  8. FUROSEMIDE [Concomitant]
  9. LOSARTAN [Concomitant]
  10. PRAVASTATIN [Concomitant]
  11. TESTOSTERONE [Concomitant]
  12. IBUPROFEN [Concomitant]
  13. AMLODIPINE [Concomitant]
  14. HYDROXOCOBALAMIN [Concomitant]

REACTIONS (2)
  - Tumour excision [Unknown]
  - Inappropriate schedule of drug administration [Unknown]
